FAERS Safety Report 18965364 (Version 1)
Quarter: 2021Q1

REPORT INFORMATION
  Report Type: Spontaneous
  Country: CA (occurrence: CA)
  Receive Date: 20210303
  Receipt Date: 20210303
  Transmission Date: 20210420
  Serious: Yes (Other)
  Sender: FDA-Public Use
  Company Number: NVSC2021CA043690

PATIENT
  Age: 8 Year
  Sex: Male
  Weight: 30 kg

DRUGS (4)
  1. BIPHENTIN [Suspect]
     Active Substance: METHYLPHENIDATE
     Indication: ATTENTION DEFICIT HYPERACTIVITY DISORDER
     Dosage: 40 MG, QD (FORMULATION: CAPSULE EXTENDED RELEASE)
     Route: 048
  2. RITALIN [Suspect]
     Active Substance: METHYLPHENIDATE HYDROCHLORIDE
     Indication: ATTENTION DEFICIT HYPERACTIVITY DISORDER
     Dosage: 5 MG, QD
     Route: 048
  3. BIPHENTIN [Suspect]
     Active Substance: METHYLPHENIDATE
     Dosage: 20 MG
     Route: 048
  4. GUANFACINE HYDROCHLORIDE. [Suspect]
     Active Substance: GUANFACINE HYDROCHLORIDE
     Indication: ATTENTION DEFICIT HYPERACTIVITY DISORDER
     Dosage: 4 MG, QD
     Route: 048

REACTIONS (1)
  - Eye pain [Recovered/Resolved]
